FAERS Safety Report 20642244 (Version 1)
Quarter: 2022Q1

REPORT INFORMATION
  Report Type: Report from Study
  Country: US (occurrence: US)
  Receive Date: 20220328
  Receipt Date: 20220328
  Transmission Date: 20220424
  Serious: Yes (Hospitalization)
  Sender: FDA-Public Use
  Company Number: US-ABBVIE-22K-163-4262946-00

PATIENT
  Sex: Female

DRUGS (1)
  1. VENCLEXTA [Suspect]
     Active Substance: VENETOCLAX
     Indication: T-cell prolymphocytic leukaemia
     Dosage: TAKE 2 (200 MG) TABLET BY MOUTH DAILY
     Route: 048

REACTIONS (3)
  - Loss of consciousness [Unknown]
  - Viral infection [Unknown]
  - Off label use [Unknown]
